FAERS Safety Report 10203073 (Version 1)
Quarter: 2014Q2

REPORT INFORMATION
  Report Type: Not Available
  Country: US (occurrence: US)
  Receive Date: 20140529
  Receipt Date: 20140529
  Transmission Date: 20141212
  Serious: Yes (Hospitalization)
  Sender: FDA-Public Use
  Company Number: US-LUPIN PHARMACEUTICALS INC.-E2B_00002033

PATIENT
  Age: 76 Year
  Sex: Female
  Weight: 48.12 kg

DRUGS (3)
  1. LOVASTATIN TABLETS USP 20 MG [Suspect]
     Indication: BLOOD CHOLESTEROL INCREASED
     Dates: start: 20140414, end: 20140421
  2. LEVOTHYROXINE [Concomitant]
     Indication: HYPOTHYROIDISM
  3. MULTIVITAMIN [Concomitant]
     Indication: VITAMIN SUPPLEMENTATION

REACTIONS (5)
  - Balance disorder [Recovering/Resolving]
  - Fatigue [Not Recovered/Not Resolved]
  - Dizziness [Recovering/Resolving]
  - Vision blurred [Recovered/Resolved]
  - Muscular weakness [Recovering/Resolving]
